FAERS Safety Report 17139105 (Version 1)
Quarter: 2019Q4

REPORT INFORMATION
  Report Type: Spontaneous
  Country: SE (occurrence: SE)
  Receive Date: 20191211
  Receipt Date: 20191211
  Transmission Date: 20200122
  Serious: Yes (Hospitalization)
  Sender: FDA-Public Use
  Company Number: SE-TEVA-2019-SE-1149132

PATIENT
  Age: 23 Year
  Sex: Female

DRUGS (3)
  1. OXASCAND 15 MG TABLETT [Suspect]
     Active Substance: OXAZEPAM
     Route: 048
     Dates: start: 20181117, end: 20181117
  2. PARGITAN 5 MG TABLETT [Suspect]
     Active Substance: TRIHEXYPHENIDYL HYDROCHLORIDE
     Route: 048
     Dates: start: 20181117, end: 20181117
  3. LERGIGAN [PROMETHAZINE HYDROCHLORIDE] [Suspect]
     Active Substance: PROMETHAZINE HYDROCHLORIDE
     Route: 048
     Dates: start: 20181117, end: 20181117

REACTIONS (2)
  - Intentional overdose [Unknown]
  - Intentional self-injury [Unknown]

NARRATIVE: CASE EVENT DATE: 20181117
